FAERS Safety Report 7725144-8 (Version None)
Quarter: 2011Q3

REPORT INFORMATION
  Report Type: 
  Country: None (occurrence: None)
  Receive Date: 20110901
  Receipt Date: 20110817
  Transmission Date: 20111222
  Serious: Yes (Disabling, Other)
  Sender: FDA-Public Use
  Company Number: BR-AMGEN-QUU423152

PATIENT
  Age: 44 Year
  Sex: Female
  Weight: 126 kg

DRUGS (10)
  1. OLMESARTAN MEDOXOMIL [Suspect]
  2. CLINFAR [Concomitant]
     Indication: BLOOD CHOLESTEROL
     Dosage: 20 MG, UNK
     Route: 065
  3. FUROSEMIDE [Suspect]
     Indication: BLOOD PRESSURE
  4. ACETAMINOPHEN [Concomitant]
     Dosage: UNK UNK, UNK
     Route: 065
  5. FUROSEMIDE [Concomitant]
     Dosage: 20 UNK, UNK
     Route: 065
  6. OMEPRAZOLE [Concomitant]
     Indication: ABDOMINAL PAIN UPPER
     Dosage: 20 MG, UNK
     Route: 065
  7. ENBREL [Suspect]
     Indication: ANKYLOSING SPONDYLITIS
     Dosage: 50 MG, QWK
     Route: 058
     Dates: start: 20100406
  8. LEVOTHYROXINE SODIUM [Concomitant]
     Dosage: UNK UNK, UNK
     Route: 065
  9. SIMVASTATIN [Suspect]
     Indication: BLOOD CHOLESTEROL
  10. LEVOTHYROXINE SODIUM [Suspect]
     Indication: HYPOTHYROIDISM

REACTIONS (9)
  - DEPRESSION [None]
  - RENAL DISORDER [None]
  - HEPATOMEGALY [None]
  - INTESTINAL OBSTRUCTION [None]
  - SWELLING [None]
  - PROTEINURIA [None]
  - MEMORY IMPAIRMENT [None]
  - BREAST MASS [None]
  - WEIGHT INCREASED [None]
